FAERS Safety Report 9557144 (Version 1)
Quarter: 2013Q3

REPORT INFORMATION
  Report Type: Spontaneous
  Country: US (occurrence: None)
  Receive Date: 20130726
  Receipt Date: 20130726
  Transmission Date: 20140515
  Serious: Yes (Hospitalization)
  Sender: FDA-Public Use
  Company Number: UTC-025075

PATIENT
  Age: 51 Year
  Sex: Female
  Weight: 63.63 kg

DRUGS (2)
  1. REMODULIN [Suspect]
     Indication: PULMONARY ARTERIAL HYPERTENSION
     Route: 041
  2. TRACLEER [Concomitant]

REACTIONS (1)
  - Injection site cellulitis [None]
